FAERS Safety Report 8841364 (Version 1)
Quarter: 2012Q4

REPORT INFORMATION
  Report Type: 
  Country: US (occurrence: US)
  Receive Date: 20121015
  Receipt Date: 20121015
  Transmission Date: 20130627
  Serious: No
  Sender: FDA-Public Use
  Company Number: US-BAYER-2012-102206

PATIENT
  Age: 65 Year
  Sex: Male
  Weight: 88 kg

DRUGS (6)
  1. ALEVE CAPLET/TABLET,MIDOL EXTENDED RELIEF CAPLET [Suspect]
     Indication: MYALGIA
     Dosage: UNK UNK, PRN
     Route: 048
  2. ALEVE CAPLET/TABLET,MIDOL EXTENDED RELIEF CAPLET [Suspect]
     Indication: MYALGIA
     Dosage: 3 DF, ONCE
     Route: 048
     Dates: start: 20120925, end: 20120925
  3. ALEVE CAPLET/TABLET,MIDOL EXTENDED RELIEF CAPLET [Suspect]
     Indication: MYALGIA
     Dosage: 2 DF, ONCE
     Route: 048
     Dates: start: 20120926, end: 20120926
  4. LOVASTATIN [Concomitant]
  5. DOXAZOSIN [Concomitant]
  6. ONE A DAY MEN^S 50+ HEALTHY ADVANTAGE [Concomitant]

REACTIONS (11)
  - Nausea [Recovered/Resolved]
  - Vomiting [Recovered/Resolved]
  - Throat irritation [Recovered/Resolved]
  - Headache [Recovered/Resolved]
  - Pain [Not Recovered/Not Resolved]
  - Fatigue [Not Recovered/Not Resolved]
  - Hyperhidrosis [Recovered/Resolved]
  - Erythema [Recovered/Resolved]
  - Paraesthesia [Recovered/Resolved]
  - Feeling hot [Recovered/Resolved]
  - Dizziness [Recovered/Resolved]
